FAERS Safety Report 4921252-5 (Version None)
Quarter: 2006Q1

REPORT INFORMATION
  Report Type: 
  Country: None (occurrence: None)
  Receive Date: 20060224
  Receipt Date: 20060130
  Transmission Date: 20060701
  Serious: Yes (Other)
  Sender: FDA-Public Use
  Company Number: NL-BOEHRINGER INGELHEIM PHARMACEUTICALS, INC.-2006-DE-00548DE

PATIENT
  Sex: Male

DRUGS (3)
  1. SIFROL [Suspect]
     Indication: PARKINSON'S DISEASE
  2. SIFROL [Suspect]
     Route: 048
  3. SINEMET [Concomitant]

REACTIONS (3)
  - ABNORMAL BEHAVIOUR [None]
  - LIBIDO INCREASED [None]
  - PATHOLOGICAL GAMBLING [None]
